FAERS Safety Report 18896968 (Version 1)
Quarter: 2021Q1

REPORT INFORMATION
  Report Type: Spontaneous
  Country: US (occurrence: US)
  Receive Date: 20210212
  Receipt Date: 20210212
  Transmission Date: 20210420
  Serious: Yes (Other)
  Sender: FDA-Public Use
  Company Number: None

PATIENT
  Sex: Male

DRUGS (1)
  1. DEFERASIROX 180MG TAB [Suspect]
     Active Substance: DEFERASIROX
     Indication: SICKLE CELL DISEASE
     Route: 048
     Dates: start: 20201124

REACTIONS (2)
  - Hospitalisation [None]
  - Intentional dose omission [None]
